FAERS Safety Report 5872611-8 (Version None)
Quarter: 2008Q3

REPORT INFORMATION
  Report Type: 
  Country: None (occurrence: None)
  Receive Date: 20080905
  Receipt Date: 20080827
  Transmission Date: 20090109
  Serious: Yes (Other)
  Sender: FDA-Public Use
  Company Number: US-ROCHE-565253

PATIENT
  Sex: Female
  Weight: 49.4 kg

DRUGS (7)
  1. PEG-INTERFERON A-2A (RO 25-8310) [Suspect]
     Indication: HEPATITIS C
     Dosage: FORMULATION: PRE-FILLED SYRINGE (PFS)
     Route: 065
     Dates: start: 20071116, end: 20080201
  2. PEG-INTERFERON A-2A (RO 25-8310) [Suspect]
     Dosage: THERAPY SUSPENDED FOR TWO WEEKS
     Route: 065
     Dates: end: 20080425
  3. PEG-INTERFERON A-2A (RO 25-8310) [Suspect]
     Dosage: RESTARTED AFTER TWO MONTHS OF SUSPENSION
     Route: 065
     Dates: start: 20080706
  4. RIBAVIRIN [Suspect]
     Indication: HEPATITIS C
     Route: 065
     Dates: start: 20071116
  5. RIBAVIRIN [Suspect]
     Dosage: DOSE REDUCED
     Route: 065
     Dates: end: 20080425
  6. RIBAVIRIN [Suspect]
     Dosage: RESTARTED AFTER A GAP OF TWO MONTHS
     Route: 065
     Dates: start: 20080706
  7. RIBAVIRIN [Suspect]
     Route: 065

REACTIONS (5)
  - CHRONIC OBSTRUCTIVE PULMONARY DISEASE [None]
  - MONOPLEGIA [None]
  - MULTIPLE SCLEROSIS [None]
  - NEUTROPENIA [None]
  - WHITE BLOOD CELL COUNT DECREASED [None]
